FAERS Safety Report 4640814-6 (Version None)
Quarter: 2005Q2

REPORT INFORMATION
  Report Type: 
  Country: None (occurrence: None)
  Receive Date: 20050324
  Receipt Date: 20050118
  Transmission Date: 20051028
  Serious: No
  Sender: FDA-Public Use
  Company Number: 211862

PATIENT
  Age: 60 Year
  Sex: Male

DRUGS (2)
  1. AVASTIN [Suspect]
     Indication: COLON CANCER
     Dosage: 370 MG, Q14D
     Dates: start: 20040803
  2. CAMPTOSAR [Concomitant]

REACTIONS (1)
  - JAUNDICE [None]
